FAERS Safety Report 25833343 (Version 1)
Quarter: 2025Q3

REPORT INFORMATION
  Report Type: Spontaneous
  Country: IL (occurrence: IL)
  Receive Date: 20250922
  Receipt Date: 20250922
  Transmission Date: 20251020
  Serious: Yes (Life-Threatening)
  Sender: GRIFOLS
  Company Number: IL-IGSA-BIG0037999

PATIENT
  Sex: Female

DRUGS (5)
  1. FLEBOGAMMA DIF [Suspect]
     Active Substance: HUMAN IMMUNOGLOBULIN G
     Indication: Hypogammaglobulinaemia
     Route: 065
     Dates: start: 20250812
  2. PIPERACILLIN SODIUM\TAZOBACTAM SODIUM [Concomitant]
     Active Substance: PIPERACILLIN SODIUM\TAZOBACTAM SODIUM
  3. CEFUROXIME [Concomitant]
     Active Substance: CEFUROXIME
  4. ACETAMINOPHEN [Concomitant]
     Active Substance: ACETAMINOPHEN
  5. IBUPROFEN [Concomitant]
     Active Substance: IBUPROFEN

REACTIONS (5)
  - Pyrexia [Unknown]
  - Chills [Unknown]
  - Pallor [Unknown]
  - Cyanosis [Unknown]
  - Oxygen saturation decreased [Unknown]
